FAERS Safety Report 25564958 (Version 1)
Quarter: 2025Q3

REPORT INFORMATION
  Report Type: Spontaneous
  Country: US (occurrence: US)
  Receive Date: 20250716
  Receipt Date: 20250716
  Transmission Date: 20251021
  Serious: No
  Sender: NOVO NORDISK
  Company Number: US-NOVOPROD-1361204

PATIENT
  Sex: Female

DRUGS (1)
  1. OZEMPIC [Suspect]
     Active Substance: SEMAGLUTIDE
     Indication: Type 2 diabetes mellitus
     Route: 058
     Dates: end: 202406

REACTIONS (4)
  - Abdominal distension [Recovered/Resolved]
  - Eructation [Recovered/Resolved]
  - Constipation [Recovered/Resolved]
  - Off label use [Unknown]
